FAERS Safety Report 11892767 (Version 1)
Quarter: 2016Q1

REPORT INFORMATION
  Report Type: Spontaneous
  Country: US (occurrence: US)
  Receive Date: 20160106
  Receipt Date: 20160106
  Transmission Date: 20160526
  Serious: No
  Sender: FDA-Public Use
  Company Number: US-PFIZER INC-2015448290

PATIENT
  Sex: Female

DRUGS (2)
  1. LYRICA [Suspect]
     Active Substance: PREGABALIN
     Indication: BACK PAIN
     Dosage: 75 MG, UNK
  2. LYRICA [Suspect]
     Active Substance: PREGABALIN
     Dosage: 50 UNK, UNK

REACTIONS (6)
  - Disturbance in attention [Unknown]
  - Rash [Unknown]
  - Chills [Unknown]
  - Diplopia [Unknown]
  - Crying [Unknown]
  - Drug ineffective [Unknown]
